FAERS Safety Report 12646570 (Version 1)
Quarter: 2016Q3

REPORT INFORMATION
  Report Type: Spontaneous
  Country: US (occurrence: US)
  Receive Date: 20160812
  Receipt Date: 20160812
  Transmission Date: 20161109
  Serious: No
  Sender: FDA-Public Use
  Company Number: US-009507513-1608USA006775

PATIENT
  Age: 21 Year
  Sex: Female

DRUGS (6)
  1. HYDROCORTISONE. [Suspect]
     Active Substance: HYDROCORTISONE
     Dosage: BEGINNING ON POST-OPERATIVE DAY 3, 20 MG IN THE MORNING AND 10 MG IN THE EVENING
     Route: 042
  2. HYDROCORTISONE. [Suspect]
     Active Substance: HYDROCORTISONE
     Dosage: UNK
     Route: 042
  3. HYDROCORTISONE. [Suspect]
     Active Substance: HYDROCORTISONE
     Dosage: STRESS DOSES
  4. HYDROCORTISONE. [Suspect]
     Active Substance: HYDROCORTISONE
     Dosage: SINCE POST-OPERATIVE DAY 8, 20 MG IN THE MORNING AND 5 MG IN THE EVENING
     Route: 042
  5. FLUDROCORTISONE [Concomitant]
     Active Substance: FLUDROCORTISONE
     Dosage: BEGINNING ON POST-OPERATIVE DAY 3, 100 MICROGRAM, DAILY
  6. HYDROCORTISONE. [Suspect]
     Active Substance: HYDROCORTISONE
     Dosage: 100 MG, ONCE, PREOPERATIVELY
     Route: 042

REACTIONS (1)
  - Exposure during pregnancy [Unknown]
